FAERS Safety Report 9622457 (Version 2)
Quarter: 2013Q4

REPORT INFORMATION
  Report Type: Spontaneous
  Country: US (occurrence: US)
  Receive Date: 20131015
  Receipt Date: 20131015
  Transmission Date: 20140711
  Serious: No
  Sender: FDA-Public Use
  Company Number: US-PURDUE-USA-2012-0086010

PATIENT
  Sex: Male

DRUGS (1)
  1. BUTRANS [Suspect]
     Indication: BACK PAIN
     Dosage: 10 MCG/HR, UNK, WEARING 2 5MCG PATCHES
     Route: 062
     Dates: start: 201203

REACTIONS (4)
  - Drug effect decreased [Unknown]
  - Application site pruritus [Unknown]
  - Extra dose administered [Unknown]
  - Application site pain [Unknown]
